APPROVED DRUG PRODUCT: LEVETIRACETAM
Active Ingredient: LEVETIRACETAM
Strength: 500MG
Dosage Form/Route: TABLET;ORAL
Application: A077319 | Product #002 | TE Code: AB
Applicant: OXFORD PHARMACEUTICALS LLC
Approved: Mar 20, 2009 | RLD: No | RS: No | Type: RX